FAERS Safety Report 5128615-6 (Version None)
Quarter: 2006Q4

REPORT INFORMATION
  Report Type: 
  Country: None (occurrence: None)
  Receive Date: 20061011
  Receipt Date: 20061003
  Transmission Date: 20070319
  Serious: Yes (Hospitalization)
  Sender: FDA-Public Use
  Company Number: 163-20785-06100142

PATIENT
  Age: 67 Year
  Sex: Male

DRUGS (1)
  1. THALOMIDE (THALIDOMIDE) (CAPSULES) [Suspect]
     Indication: MULTIPLE MYELOMA
     Dosage: 200 MG, DAILY, ORAL
     Route: 048
     Dates: start: 20050401, end: 20060101

REACTIONS (3)
  - COLLAPSE OF LUNG [None]
  - KIDNEY INFECTION [None]
  - PNEUMONIA [None]
